FAERS Safety Report 8506876 (Version 3)
Quarter: 2014Q2

REPORT INFORMATION
  Report Type: Spontaneous
  Country: US (occurrence: US)
  Receive Date: 20120412
  Receipt Date: 20140401
  Transmission Date: 20141212
  Serious: No
  Sender: FDA-Public Use
  Company Number: US-ASTRAZENECA-2011SE44154

PATIENT
  Age: 89 Year
  Sex: Female
  Weight: 67.1 kg

DRUGS (8)
  1. NEXIUM [Suspect]
     Indication: GASTROOESOPHAGEAL REFLUX DISEASE
     Route: 048
     Dates: start: 2008
  2. NEXIUM [Suspect]
     Indication: GASTROOESOPHAGEAL REFLUX DISEASE
     Route: 048
  3. NEXIUM [Suspect]
     Indication: GASTROOESOPHAGEAL REFLUX DISEASE
     Route: 048
     Dates: start: 2010
  4. IRON [Suspect]
     Route: 065
  5. BUFFERIN [Concomitant]
  6. ALEVE [Concomitant]
  7. MAXZIDE [Concomitant]
  8. CLARITIN [Concomitant]

REACTIONS (10)
  - Fall [Unknown]
  - Feeling abnormal [Unknown]
  - Back injury [Unknown]
  - Muscle spasms [Unknown]
  - Blood iron decreased [Unknown]
  - Anaemia [Unknown]
  - Vitamin B12 deficiency [Unknown]
  - Diarrhoea [Unknown]
  - Dizziness [Unknown]
  - Abdominal pain upper [Unknown]
